FAERS Safety Report 18532932 (Version 1)
Quarter: 2020Q4

REPORT INFORMATION
  Report Type: Spontaneous
  Country: DE (occurrence: DE)
  Receive Date: 20201123
  Receipt Date: 20201123
  Transmission Date: 20210114
  Serious: Yes (Disabling, Other)
  Sender: FDA-Public Use
  Company Number: NVSC2020DE300048

PATIENT
  Age: 52 Year
  Sex: Female
  Weight: 165 kg

DRUGS (1)
  1. PREDNISOLONE. [Suspect]
     Active Substance: PREDNISOLONE
     Indication: INFLAMMATORY BOWEL DISEASE
     Dosage: 60 MG
     Route: 065
     Dates: start: 20200925

REACTIONS (15)
  - Sensory disturbance [Not Recovered/Not Resolved]
  - Deafness [Not Recovered/Not Resolved]
  - Pruritus [Not Recovered/Not Resolved]
  - Pain of skin [Not Recovered/Not Resolved]
  - Ophthalmic herpes zoster [Not Recovered/Not Resolved]
  - Rash [Not Recovered/Not Resolved]
  - Hypoaesthesia [Not Recovered/Not Resolved]
  - Fear of disease [Not Recovered/Not Resolved]
  - Herpes zoster [Not Recovered/Not Resolved]
  - Polyneuropathy [Not Recovered/Not Resolved]
  - Paraesthesia [Not Recovered/Not Resolved]
  - Pain in extremity [Recovered/Resolved with Sequelae]
  - Pain [Not Recovered/Not Resolved]
  - Disease prodromal stage [Not Recovered/Not Resolved]
  - Post herpetic neuralgia [Not Recovered/Not Resolved]

NARRATIVE: CASE EVENT DATE: 202010
